FAERS Safety Report 11029746 (Version 1)
Quarter: 2015Q2

REPORT INFORMATION
  Report Type: Spontaneous
  Country: US (occurrence: None)
  Receive Date: 20150413
  Receipt Date: 20150413
  Transmission Date: 20150821
  Serious: Yes (Other)
  Sender: FDA-Public Use
  Company Number: None

PATIENT
  Age: 88 Year
  Sex: Female
  Weight: 72.58 kg

DRUGS (15)
  1. XARELTO [Concomitant]
     Active Substance: RIVAROXABAN
  2. CELEBREX [Concomitant]
     Active Substance: CELECOXIB
  3. SYNTHROID [Concomitant]
     Active Substance: LEVOTHYROXINE SODIUM
  4. ESTRADIOL. [Concomitant]
     Active Substance: ESTRADIOL
  5. COQ10 [Concomitant]
     Active Substance: UBIDECARENONE
  6. METOPROLOL [Concomitant]
     Active Substance: METOPROLOL
  7. MULTIVIT. [Concomitant]
  8. FURESEMIDE [Concomitant]
  9. CELECOXIB. [Suspect]
     Active Substance: CELECOXIB
     Indication: OSTEOARTHRITIS
     Route: 048
     Dates: start: 20150111, end: 20150209
  10. ALPHA LIPOIC ACID [Concomitant]
     Active Substance: .ALPHA.-LIPOIC ACID
  11. TUDORZA PRESSAIR [Concomitant]
     Active Substance: ACLIDINIUM BROMIDE
  12. ZOLPIDEM [Concomitant]
     Active Substance: ZOLPIDEM\ZOLPIDEM TARTRATE
  13. METAMUCIL [Concomitant]
     Active Substance: PLANTAGO SEED
  14. VIT. E [Concomitant]
  15. FISH OIL [Concomitant]
     Active Substance: FISH OIL

REACTIONS (4)
  - Arthritis [None]
  - Activities of daily living impaired [None]
  - Product substitution issue [None]
  - Mobility decreased [None]
